FAERS Safety Report 6652818-2 (Version None)
Quarter: 2010Q1

REPORT INFORMATION
  Report Type: 
  Country: None (occurrence: None)
  Receive Date: 20100326
  Receipt Date: 20100315
  Transmission Date: 20100710
  Serious: Yes (Other)
  Sender: FDA-Public Use
  Company Number: US-RANBAXY-2010RR-32637

PATIENT
  Age: 44 Year
  Sex: Female

DRUGS (20)
  1. QUETIAPINE [Suspect]
  2. DULOXETINE HYDROCHLORIDE [Suspect]
  3. FENTANYL [Suspect]
  4. ONDANSETRON-BP [Suspect]
  5. LITHIUM [Suspect]
  6. CLONAZEPAM [Suspect]
  7. LAMOTRIGINE [Suspect]
  8. TOPIRAMATE [Suspect]
  9. MIDAZOLAM HYDROCHLORIDE [Suspect]
  10. FENTANYL [Suspect]
     Indication: ANAESTHESIA
     Dosage: 100 UG, UNK
     Route: 042
  11. PROPOFOL [Suspect]
     Indication: ANAESTHESIA
  12. ROCURONIUM BROMIDE [Suspect]
     Indication: ANAESTHESIA
  13. DESFLURANE [Suspect]
     Indication: ANAESTHESIA
  14. FENTANYL [Suspect]
     Dosage: 250 UG, UNK
     Route: 042
  15. HYDROMORPHONE HCL [Suspect]
     Route: 042
  16. ONDANSETRON SOLUTION FOR INJECTION [Suspect]
     Indication: NAUSEA
     Dosage: 4 MG, UNK
     Route: 042
  17. ONDANSETRON SOLUTION FOR INJECTION [Suspect]
     Indication: VOMITING
  18. NEOSTIGMINE [Suspect]
  19. GLYCOPYRROLATE [Suspect]
  20. ROCURONIUM BROMIDE [Suspect]

REACTIONS (2)
  - DRUG INTERACTION [None]
  - SEROTONIN SYNDROME [None]
